FAERS Safety Report 9304232 (Version 3)
Quarter: 2021Q1

REPORT INFORMATION
  Report Type: Spontaneous
  Country: DE (occurrence: DE)
  Receive Date: 20130522
  Receipt Date: 20210121
  Transmission Date: 20210420
  Serious: Yes (Life-Threatening, Hospitalization, Other)
  Sender: FDA-Public Use
  Company Number: DE-PFIZER INC-2013129996

PATIENT
  Age: 12 Year
  Sex: Female
  Weight: 44 kg

DRUGS (3)
  1. CETIRIZINE [Concomitant]
     Active Substance: CETIRIZINE HYDROCHLORIDE
     Indication: FOOD ALLERGY
     Dosage: 1 TABLET DAILY IN CASE OR EMERGENCY
  2. FASTJEKT [Suspect]
     Active Substance: EPINEPHRINE
     Indication: FOOD ALLERGY
     Dosage: UNK
     Route: 065
  3. SALBUTAMOL [Concomitant]
     Active Substance: ALBUTEROL
     Indication: FOOD ALLERGY
     Dosage: 2 DOSAGE FORMS DAILY IN CASE OR EMERGENCY
     Route: 055

REACTIONS (11)
  - Pharyngeal swelling [Unknown]
  - Asthenia [Unknown]
  - Lip blister [Unknown]
  - Product complaint [Unknown]
  - Device failure [Unknown]
  - Vomiting [Unknown]
  - Swelling [Unknown]
  - Device use issue [Unknown]
  - Nasal oedema [Unknown]
  - Product dose omission issue [Unknown]
  - Dyspnoea [Unknown]

NARRATIVE: CASE EVENT DATE: 2003
